FAERS Safety Report 6707043-3 (Version None)
Quarter: 2010Q2

REPORT INFORMATION
  Report Type: 
  Country: None (occurrence: None)
  Receive Date: 20100503
  Receipt Date: 20100421
  Transmission Date: 20101027
  Serious: Yes (Hospitalization)
  Sender: FDA-Public Use
  Company Number: PHHY2010FR26207

PATIENT
  Sex: Male

DRUGS (6)
  1. EXJADE [Suspect]
     Indication: HAEMOCHROMATOSIS
     Dosage: 1750 MG DAILY
     Dates: start: 20090420, end: 20091202
  2. MIFLASONE [Suspect]
     Indication: CHRONIC OBSTRUCTIVE PULMONARY DISEASE
  3. SPIRIVA [Suspect]
     Indication: CHRONIC OBSTRUCTIVE PULMONARY DISEASE
  4. ARANESP [Suspect]
     Indication: REFRACTORY ANAEMIA WITH AN EXCESS OF BLASTS
     Dosage: 500 MICROG EVERY 15 DAYS
     Dates: start: 20080901
  5. DANATROL [Suspect]
     Indication: EPISTAXIS
     Dosage: 600 MG DAILY
     Dates: start: 20091230
  6. RED BLOOD CELLS [Concomitant]

REACTIONS (4)
  - HYPERTENSION [None]
  - NEPHROPATHY [None]
  - RENAL FAILURE [None]
  - WEIGHT DECREASED [None]
